FAERS Safety Report 4712578-9 (Version None)
Quarter: 2005Q3

REPORT INFORMATION
  Report Type: 
  Country: None (occurrence: None)
  Receive Date: 20050712
  Receipt Date: 20050608
  Transmission Date: 20060218
  Serious: Yes (Disabling)
  Sender: FDA-Public Use
  Company Number: US-MERCK-0506USA01346

PATIENT
  Age: 59 Year
  Sex: Male

DRUGS (3)
  1. PROSCAR [Suspect]
     Indication: ALOPECIA
     Route: 048
     Dates: start: 20040101, end: 20050531
  2. PRINIVIL [Concomitant]
     Route: 048
  3. [THERAPY UNSPECIFIED] [Concomitant]
     Route: 065

REACTIONS (4)
  - HYPOAESTHESIA [None]
  - MUSCLE SPASMS [None]
  - OFF LABEL USE [None]
  - PRESCRIBED OVERDOSE [None]
